FAERS Safety Report 10734693 (Version 2)
Quarter: 2015Q1

REPORT INFORMATION
  Report Type: Report from Study
  Country: US (occurrence: US)
  Receive Date: 20150123
  Receipt Date: 20150123
  Transmission Date: 20150721
  Serious: No
  Sender: FDA-Public Use
  Company Number: US-AMGEN INC.-USASL2014096198

PATIENT
  Age: 70 Year
  Sex: Female

DRUGS (1)
  1. KYPROLIS [Suspect]
     Active Substance: CARFILZOMIB
     Indication: PLASMA CELL MYELOMA
     Dosage: UNK
     Route: 065
     Dates: start: 20140319, end: 201410

REACTIONS (6)
  - Memory impairment [Not Recovered/Not Resolved]
  - Dyspnoea [Recovering/Resolving]
  - Throat irritation [Unknown]
  - Gastrooesophageal reflux disease [Unknown]
  - Gait disturbance [Unknown]
  - Stress [Unknown]
